FAERS Safety Report 9266769 (Version 1)
Quarter: 2013Q2

REPORT INFORMATION
  Report Type: Spontaneous
  Country: IT (occurrence: IT)
  Receive Date: 20130502
  Receipt Date: 20130502
  Transmission Date: 20140414
  Serious: Yes (Hospitalization, Other)
  Sender: FDA-Public Use
  Company Number: IT-PFIZER INC-2013133969

PATIENT
  Age: 52 Year
  Sex: Female

DRUGS (3)
  1. XANAX [Suspect]
     Indication: SUICIDE ATTEMPT
     Dosage: 1 DF, 1X/DAY
     Route: 048
     Dates: start: 20130402, end: 20130402
  2. REMERON [Suspect]
     Indication: SUICIDE ATTEMPT
     Dosage: 6 DF, TOTAL
     Route: 048
     Dates: start: 20130402, end: 20130402
  3. RIVOTRIL [Suspect]
     Indication: SUICIDE ATTEMPT
     Dosage: 1 DF, TOTAL
     Route: 048
     Dates: start: 20130402, end: 20130402

REACTIONS (4)
  - Intentional overdose [Recovered/Resolved]
  - Toxicity to various agents [Recovered/Resolved]
  - Suicide attempt [Recovered/Resolved]
  - Cyclothymic disorder [Unknown]
